FAERS Safety Report 18258513 (Version 1)
Quarter: 2020Q3

REPORT INFORMATION
  Report Type: Spontaneous
  Country: US (occurrence: US)
  Receive Date: 20200911
  Receipt Date: 20200911
  Transmission Date: 20201103
  Serious: No
  Sender: FDA-Public Use
  Company Number: US-PFIZER INC-2020343274

PATIENT
  Sex: Female

DRUGS (1)
  1. GENOTROPIN MQ [Suspect]
     Active Substance: SOMATROPIN
     Dosage: 1 MG

REACTIONS (4)
  - Hypersomnia [Unknown]
  - Product dose omission issue [Unknown]
  - Quality of life decreased [Unknown]
  - Therapeutic response unexpected [Unknown]
